FAERS Safety Report 8984871 (Version 4)
Quarter: 2013Q1

REPORT INFORMATION
  Report Type: Spontaneous
  Country: US (occurrence: US)
  Receive Date: 20121225
  Receipt Date: 20130321
  Transmission Date: 20140127
  Serious: Yes (Death, Other)
  Sender: FDA-Public Use
  Company Number: US-AMGEN-USASP2012082086

PATIENT
  Age: 68 Year
  Sex: Male

DRUGS (4)
  1. XGEVA [Suspect]
     Indication: PRODUCT USED FOR UNKNOWN INDICATION
     Dosage: 120 MG, QMO
     Route: 058
     Dates: start: 20110107, end: 201109
  2. EFFEXOR [Concomitant]
     Indication: ANXIETY
     Dosage: 35.2 MG, QD
     Route: 048
  3. CLONAZEPAM [Concomitant]
     Indication: ANXIETY
     Dosage: 1 MG, QHS
     Route: 048
  4. TRAZODONE [Concomitant]
     Indication: ANXIETY
     Dosage: 100 MG, QHS
     Route: 048

REACTIONS (5)
  - Death [Fatal]
  - Submandibular mass [Unknown]
  - Osteonecrosis of jaw [Unknown]
  - Exposed bone in jaw [Recovered/Resolved]
  - Oral infection [Recovered/Resolved]
